FAERS Safety Report 19100827 (Version 1)
Quarter: 2021Q2

REPORT INFORMATION
  Report Type: Spontaneous
  Country: JP (occurrence: JP)
  Receive Date: 20210407
  Receipt Date: 20210407
  Transmission Date: 20210717
  Serious: Yes (Other)
  Sender: FDA-Public Use
  Company Number: JP-ROCHE-2801814

PATIENT
  Age: 71 Year
  Sex: Male

DRUGS (3)
  1. OXALIPLATIN. [Concomitant]
     Active Substance: OXALIPLATIN
     Indication: APPENDIX CANCER
     Route: 041
     Dates: start: 202102
  2. XELODA [Suspect]
     Active Substance: CAPECITABINE
     Indication: APPENDIX CANCER
     Dosage: DOSAGE IS UNCERTAIN.
     Route: 048
     Dates: start: 202102
  3. AVASTIN [Suspect]
     Active Substance: BEVACIZUMAB
     Indication: APPENDIX CANCER
     Dosage: DOSAGE IS UNCERTAIN.
     Route: 041
     Dates: start: 202102

REACTIONS (6)
  - Prerenal failure [Unknown]
  - Off label use [Unknown]
  - Decreased appetite [Unknown]
  - Dehydration [Unknown]
  - Duodenal ulcer [Unknown]
  - Necrotising oesophagitis [Unknown]

NARRATIVE: CASE EVENT DATE: 202103
